FAERS Safety Report 4577937-6 (Version None)
Quarter: 2005Q1

REPORT INFORMATION
  Report Type: 
  Country: None (occurrence: None)
  Receive Date: 20050127
  Receipt Date: 20040830
  Transmission Date: 20050727
  Serious: No
  Sender: FDA-Public Use
  Company Number: USA040876927

PATIENT
  Age: 14 Year
  Sex: Male

DRUGS (1)
  1. STRATTERA [Suspect]
     Indication: ATTENTION DEFICIT/HYPERACTIVITY DISORDER
     Dosage: 50 MG
     Dates: start: 20031001, end: 20031001

REACTIONS (4)
  - FATIGUE [None]
  - FEELING ABNORMAL [None]
  - FEELING OF RELAXATION [None]
  - SOMNOLENCE [None]
